FAERS Safety Report 13831767 (Version 1)
Quarter: 2017Q3

REPORT INFORMATION
  Report Type: Spontaneous
  Country: US (occurrence: US)
  Receive Date: 20170803
  Receipt Date: 20170803
  Transmission Date: 20171127
  Serious: No
  Sender: FDA-Public Use
  Company Number: US-ROCHE-674814

PATIENT
  Age: 73 Year
  Sex: Female
  Weight: 45.8 kg

DRUGS (3)
  1. ALENDRONATE SODIUM. [Suspect]
     Active Substance: ALENDRONATE SODIUM
     Indication: OSTEOPOROSIS
     Dosage: DRUG: ALENDRONATE
     Route: 048
     Dates: start: 20091118, end: 20091202
  2. CALCIUM [Concomitant]
     Active Substance: CALCIUM
     Route: 065
  3. BONIVA [Suspect]
     Active Substance: IBANDRONATE SODIUM
     Indication: OSTEOPOROSIS
     Route: 048
     Dates: start: 200907, end: 20090906

REACTIONS (8)
  - Pain in extremity [Unknown]
  - Dizziness [Unknown]
  - Hot flush [Unknown]
  - Feeling abnormal [Unknown]
  - Hypoaesthesia [Unknown]
  - Arthralgia [Unknown]
  - Nausea [Unknown]
  - Back pain [Unknown]
